FAERS Safety Report 16913687 (Version 3)
Quarter: 2020Q1

REPORT INFORMATION
  Report Type: Spontaneous
  Country: CA (occurrence: CA)
  Receive Date: 20191014
  Receipt Date: 20200206
  Transmission Date: 20200409
  Serious: Yes (Hospitalization)
  Sender: FDA-Public Use
  Company Number: CA-PFIZER INC-2019100881

PATIENT
  Age: 14 Year
  Sex: Female

DRUGS (4)
  1. GENOTROPIN [Suspect]
     Active Substance: SOMATROPIN
     Indication: COELIAC DISEASE
     Dosage: 1.8 MG, CYCLIC (6 DAYS PER WEEK; SUNDAY OFF)
     Route: 058
     Dates: start: 2019, end: 2019
  2. GENOTROPIN [Suspect]
     Active Substance: SOMATROPIN
     Indication: GROWTH HORMONE DEFICIENCY
     Dosage: 1.8 MG (SIX TIMES A WEEK)
     Route: 058
     Dates: start: 20190329, end: 201909
  3. GENOTROPIN [Suspect]
     Active Substance: SOMATROPIN
     Indication: BODY HEIGHT BELOW NORMAL
     Dosage: 2 MG, CYCLIC (6 DAYS PER WEEK; SUNDAY OFF)
     Route: 058
     Dates: start: 2019, end: 2019
  4. GENOTROPIN [Suspect]
     Active Substance: SOMATROPIN
     Dosage: 2 MG, CYCLIC (6 DAYS PER WEEK; SUNDAY OFF)
     Route: 058
     Dates: start: 201911

REACTIONS (14)
  - Blood albumin increased [Unknown]
  - Alanine aminotransferase increased [Unknown]
  - Haemoglobin increased [Unknown]
  - Decreased appetite [Recovering/Resolving]
  - Antibody test abnormal [Unknown]
  - Blood thyroid stimulating hormone increased [Unknown]
  - Eating disorder [Recovering/Resolving]
  - Weight gain poor [Unknown]
  - White blood cell disorder [Unknown]
  - Headache [Unknown]
  - Anxiety [Unknown]
  - Asthenia [Unknown]
  - Weight decreased [Recovering/Resolving]
  - Mean cell haemoglobin concentration increased [Unknown]

NARRATIVE: CASE EVENT DATE: 201909
